FAERS Safety Report 4893244-6 (Version None)
Quarter: 2006Q1

REPORT INFORMATION
  Report Type: 
  Country: None (occurrence: None)
  Receive Date: 20060124
  Receipt Date: 20060116
  Transmission Date: 20060701
  Serious: Yes (Life-Threatening)
  Sender: FDA-Public Use
  Company Number: 2006-137371-NL

PATIENT
  Sex: Male

DRUGS (1)
  1. MIRTAZAPINE [Suspect]
     Indication: TENSION
     Dosage: DF

REACTIONS (10)
  - ANGINA PECTORIS [None]
  - ARTHRALGIA [None]
  - HALLUCINATION [None]
  - HYPERHIDROSIS [None]
  - MUSCLE SPASMS [None]
  - OEDEMA PERIPHERAL [None]
  - RASH [None]
  - RENAL FAILURE [None]
  - TENSION HEADACHE [None]
  - VASCULITIS [None]
